FAERS Safety Report 8392466-X (Version None)
Quarter: 2012Q2

REPORT INFORMATION
  Report Type: 
  Country: None (occurrence: None)
  Receive Date: 20120529
  Receipt Date: 20120525
  Transmission Date: 20120825
  Serious: No
  Sender: FDA-Public Use
  Company Number: US-PFIZER INC-2012116183

PATIENT
  Sex: Female
  Weight: 84.354 kg

DRUGS (10)
  1. RISPERIDONE [Concomitant]
     Indication: ANXIETY
  2. OMEPRAZOLE [Concomitant]
     Indication: PHARYNGEAL DISORDER
     Dosage: 40MG DAILY
  3. LYRICA [Suspect]
     Dosage: 50 MG, 3X/DAY
     Route: 048
     Dates: start: 20120511, end: 20120501
  4. RISPERIDONE [Concomitant]
     Indication: NIGHTMARE
  5. LYRICA [Suspect]
     Dosage: 50 MG, 2X/DAY
     Route: 048
     Dates: start: 20120501
  6. RISPERIDONE [Concomitant]
     Indication: SLEEP APNOEA SYNDROME
     Dosage: 0.25MG DAILY
  7. PRAZOSIN [Concomitant]
     Indication: NIGHTMARE
     Dosage: 5MG DAILY
     Route: 048
  8. LYRICA [Suspect]
     Indication: FIBROMYALGIA
     Dosage: 25 MG, UNK
     Route: 048
  9. CYMBALTA [Concomitant]
     Indication: DEPRESSION
     Dosage: 60MG DAILY
     Dates: start: 20110916
  10. OMEPRAZOLE [Concomitant]
     Indication: DYSPNOEA

REACTIONS (3)
  - EMOTIONAL DISTRESS [None]
  - DRUG INEFFECTIVE [None]
  - MOOD SWINGS [None]
